FAERS Safety Report 7404261-6 (Version None)
Quarter: 2011Q2

REPORT INFORMATION
  Report Type: 
  Country: None (occurrence: None)
  Receive Date: 20110408
  Receipt Date: 20110401
  Transmission Date: 20111010
  Serious: Yes (Other)
  Sender: FDA-Public Use
  Company Number: PHHY2011US26990

PATIENT
  Sex: Female

DRUGS (3)
  1. METHOTREXATE [Concomitant]
  2. HUMIRA [Concomitant]
  3. RECLAST [Suspect]
     Dosage: 5 MG
     Route: 042

REACTIONS (5)
  - PELVIC FRACTURE [None]
  - BACK PAIN [None]
  - WALKING AID USER [None]
  - PAIN [None]
  - ARTHRALGIA [None]
